FAERS Safety Report 5072478-4 (Version None)
Quarter: 2006Q3

REPORT INFORMATION
  Report Type: 
  Country: None (occurrence: None)
  Receive Date: 20060801
  Receipt Date: 20060725
  Transmission Date: 20061208
  Serious: Yes (Disabling)
  Sender: FDA-Public Use
  Company Number: 2006090182

PATIENT
  Age: 57 Year
  Sex: Male

DRUGS (4)
  1. LIPITOR [Suspect]
     Indication: HYPERCHOLESTEROLAEMIA
     Dosage: ORAL
     Route: 048
  2. ZOCOR [Suspect]
     Indication: HYPERCHOLESTEROLAEMIA
     Dosage: ORAL
     Route: 048
  3. SELEKTINE (PRAVASTATIN SODIUM) [Suspect]
     Indication: HYPERCHOLESTEROLAEMIA
     Dosage: ORAL
     Route: 048
  4. CRESTOR [Suspect]
     Indication: HYPERCHOLESTEROLAEMIA
     Dosage: ORAL
     Route: 048

REACTIONS (8)
  - ABASIA [None]
  - ASTHENIA [None]
  - DEPRESSION [None]
  - LIPIDS INCREASED [None]
  - MUSCLE DISORDER [None]
  - MYALGIA [None]
  - SOMNOLENCE [None]
  - WEIGHT INCREASED [None]
